FAERS Safety Report 9216934 (Version 2)
Quarter: 2013Q2

REPORT INFORMATION
  Report Type: Spontaneous
  Country: US (occurrence: None)
  Receive Date: 20130403
  Receipt Date: 20130521
  Transmission Date: 20140414
  Serious: Yes (Hospitalization, Other)
  Sender: FDA-Public Use
  Company Number: IMP_06637_2013

PATIENT
  Age: 22 Year
  Sex: Male

DRUGS (2)
  1. BUPROPION HCL [Suspect]
     Indication: PANIC ATTACK
     Dosage: FREQUENCY UNKNOWN
     Route: 048
     Dates: start: 20130313
  2. AMOXICILLIN [Concomitant]

REACTIONS (4)
  - Drug dispensing error [None]
  - Convulsion [None]
  - Incorrect dose administered [None]
  - Pain [None]
